FAERS Safety Report 6930881-9 (Version None)
Quarter: 2010Q3

REPORT INFORMATION
  Report Type: 
  Country: None (occurrence: None)
  Receive Date: 20100818
  Receipt Date: 20100708
  Transmission Date: 20110219
  Serious: Yes (Other)
  Sender: FDA-Public Use
  Company Number: US-BAYER-201012522NA

PATIENT
  Age: 26 Year
  Sex: Female
  Weight: 113 kg

DRUGS (7)
  1. YASMIN [Suspect]
     Indication: PRODUCT USED FOR UNKNOWN INDICATION
     Route: 048
     Dates: start: 20050101
  2. YASMIN [Suspect]
     Route: 048
     Dates: start: 20080101, end: 20090101
  3. YAZ [Suspect]
     Indication: PRODUCT USED FOR UNKNOWN INDICATION
     Route: 048
     Dates: start: 20090101, end: 20090201
  4. YAZ [Suspect]
     Route: 048
     Dates: start: 20090501, end: 20090801
  5. DROSPIRENONE AND EHTINYL ESTRADIOL [Suspect]
     Indication: PRODUCT USED FOR UNKNOWN INDICATION
     Route: 048
     Dates: start: 20081201, end: 20090501
  6. DROSPIRENONE AND EHTINYL ESTRADIOL [Suspect]
     Route: 048
     Dates: start: 20070101
  7. NAPROXEN [Concomitant]
     Indication: PRODUCT USED FOR UNKNOWN INDICATION
     Route: 065

REACTIONS (2)
  - GALLBLADDER DISORDER [None]
  - HEADACHE [None]
